FAERS Safety Report 7622143-1 (Version None)
Quarter: 2011Q3

REPORT INFORMATION
  Report Type: 
  Country: None (occurrence: None)
  Receive Date: 20110720
  Receipt Date: 20110503
  Transmission Date: 20111222
  Serious: Yes (Hospitalization, Other)
  Sender: FDA-Public Use
  Company Number: US-BAYER-201030595NA

PATIENT
  Age: 27 Year
  Sex: Female
  Weight: 104 kg

DRUGS (3)
  1. YASMIN [Suspect]
     Indication: MENSTRUATION IRREGULAR
     Dosage: UNK
     Route: 048
     Dates: start: 20060101, end: 20070101
  2. VITAMIN TAB [Concomitant]
     Dosage: DAILY
     Dates: start: 19990101
  3. DROSPIRENONE AND ETHINYL ESTRADIOL [Suspect]
     Indication: MENSTRUATION IRREGULAR
     Dosage: UNK
     Route: 048
     Dates: start: 20080101, end: 20090101

REACTIONS (6)
  - CHOLESTEROSIS [None]
  - DYSPEPSIA [None]
  - CHOLECYSTITIS CHRONIC [None]
  - BILIARY DYSKINESIA [None]
  - GALLBLADDER DISORDER [None]
  - BILIARY COLIC [None]
